FAERS Safety Report 19753507 (Version 5)
Quarter: 2022Q4

REPORT INFORMATION
  Report Type: Report from Study
  Country: EG (occurrence: EG)
  Receive Date: 20210827
  Receipt Date: 20221021
  Transmission Date: 20230112
  Serious: Yes (Other)
  Sender: FDA-Public Use
  Company Number: EG-NOVARTISPH-NVSC2021EG190303

PATIENT
  Age: 35 Year
  Sex: Female

DRUGS (15)
  1. GILENYA [Suspect]
     Active Substance: FINGOLIMOD HYDROCHLORIDE
     Indication: Multiple sclerosis
     Dosage: 0.5 MG, QD
     Route: 048
     Dates: start: 20201220
  2. GILENYA [Suspect]
     Active Substance: FINGOLIMOD HYDROCHLORIDE
     Dosage: 0.5 MG, QD, EVERY OTHER DAY
     Route: 065
     Dates: start: 202012
  3. GILENYA [Suspect]
     Active Substance: FINGOLIMOD HYDROCHLORIDE
     Dosage: UNK UNK, QOD
     Route: 065
     Dates: start: 202202, end: 20220615
  4. FOLIC ACID [Concomitant]
     Active Substance: FOLIC ACID
     Indication: Supplementation therapy
     Dosage: 1 DOSAGE FORM, BID
     Route: 065
  5. FOLIC ACID [Concomitant]
     Active Substance: FOLIC ACID
     Dosage: 1 DOSAGE FORM, QD
     Route: 048
     Dates: start: 20220619
  6. ESZOPICLONE [Concomitant]
     Active Substance: ESZOPICLONE
     Indication: Sleep disorder
     Dosage: 3 MG, QD
     Route: 065
     Dates: start: 2010
  7. ESZOPICLONE [Concomitant]
     Active Substance: ESZOPICLONE
     Dosage: 1 DOSAGE FORM, QD
     Route: 048
     Dates: start: 20220619
  8. MULTIRELAX [Concomitant]
     Indication: Product used for unknown indication
     Dosage: 10 MG, QD
     Route: 065
  9. URSOPLUS [Concomitant]
     Indication: Hepatic enzyme increased
     Dosage: 1 DOSAGE FORM, QD
     Route: 048
     Dates: start: 20220619
  10. VIDROP [Concomitant]
     Indication: Supplementation therapy
     Dosage: UNK UNK, QW
     Route: 048
     Dates: start: 20220619
  11. QUITAPEX [Concomitant]
     Indication: Sleep disorder
     Dosage: 1 DOSAGE FORM, QD, ADMINISTERED ONE DOSE THEN STOPPED
     Route: 048
     Dates: start: 20210619
  12. OMEGA 3 [Concomitant]
     Active Substance: CAPSAICIN
     Indication: Product used for unknown indication
     Dosage: 1 DOSAGE FORM, QD
     Route: 048
     Dates: start: 20220619
  13. BENFOTIAMINE\CYANOCOBALAMIN\PYRIDOXINE HYDROCHLORIDE [Concomitant]
     Active Substance: BENFOTIAMINE\CYANOCOBALAMIN\PYRIDOXINE HYDROCHLORIDE
     Indication: Product used for unknown indication
     Dosage: 1 DOSAGE FORM, QD
     Route: 048
     Dates: start: 20220619
  14. TRYPTIZOL [Concomitant]
     Active Substance: AMITRIPTYLINE HYDROCHLORIDE
     Indication: Sleep disorder
     Dosage: 1 DOSAGE FORM, QD
     Route: 048
     Dates: start: 20220619
  15. GINKGO [Concomitant]
     Active Substance: GINKGO
     Indication: Amnesia
     Dosage: 1 DOSAGE FORM, QD
     Route: 048
     Dates: start: 20220619

REACTIONS (28)
  - Anaemia [Unknown]
  - Hepatic enzyme increased [Recovering/Resolving]
  - Visual impairment [Not Recovered/Not Resolved]
  - Bone pain [Not Recovered/Not Resolved]
  - Hypoaesthesia [Not Recovered/Not Resolved]
  - Burning sensation [Not Recovered/Not Resolved]
  - Fall [Not Recovered/Not Resolved]
  - Contusion [Not Recovered/Not Resolved]
  - Intervertebral disc protrusion [Not Recovered/Not Resolved]
  - Neck pain [Not Recovered/Not Resolved]
  - Arthralgia [Not Recovered/Not Resolved]
  - Pain in extremity [Not Recovered/Not Resolved]
  - Dyskinesia [Not Recovered/Not Resolved]
  - Paraesthesia [Not Recovered/Not Resolved]
  - Insomnia [Not Recovered/Not Resolved]
  - Muscle tightness [Not Recovered/Not Resolved]
  - Condition aggravated [Not Recovered/Not Resolved]
  - Feeling abnormal [Not Recovered/Not Resolved]
  - Headache [Not Recovered/Not Resolved]
  - Multiple sclerosis relapse [Not Recovered/Not Resolved]
  - Diplopia [Not Recovered/Not Resolved]
  - Pain [Not Recovered/Not Resolved]
  - Eye pain [Not Recovered/Not Resolved]
  - Back pain [Not Recovered/Not Resolved]
  - White blood cell count decreased [Unknown]
  - Amnesia [Not Recovered/Not Resolved]
  - Fatigue [Not Recovered/Not Resolved]
  - Abdominal pain upper [Not Recovered/Not Resolved]

NARRATIVE: CASE EVENT DATE: 20201220
